FAERS Safety Report 6518993-5 (Version None)
Quarter: 2009Q4

REPORT INFORMATION
  Report Type: 
  Country: None (occurrence: None)
  Receive Date: 20091228
  Receipt Date: 20091217
  Transmission Date: 20100525
  Serious: No
  Sender: FDA-Public Use
  Company Number: TH-ROCHE-676294

PATIENT
  Sex: Female

DRUGS (1)
  1. BLINDED OSELTAMIVIR [Suspect]
     Indication: PROPHYLAXIS
     Route: 065
     Dates: start: 20091026

REACTIONS (1)
  - PREGNANCY [None]
